FAERS Safety Report 23985001 (Version 1)
Quarter: 2024Q2

REPORT INFORMATION
  Report Type: Report from Study
  Country: JP (occurrence: JP)
  Receive Date: 20240618
  Receipt Date: 20240618
  Transmission Date: 20240716
  Serious: Yes (Disabling, Other)
  Sender: FDA-Public Use
  Company Number: JP-ASTELLAS-2022JP005442

PATIENT
  Age: 78 Year
  Sex: Male
  Weight: 58.9 kg

DRUGS (24)
  1. ENFORTUMAB VEDOTIN-EJFV [Suspect]
     Active Substance: ENFORTUMAB VEDOTIN-EJFV
     Indication: Bladder cancer
     Route: 041
     Dates: start: 20220118, end: 20220118
  2. ENFORTUMAB VEDOTIN-EJFV [Suspect]
     Active Substance: ENFORTUMAB VEDOTIN-EJFV
     Route: 041
     Dates: start: 20220125, end: 20220125
  3. ENFORTUMAB VEDOTIN-EJFV [Suspect]
     Active Substance: ENFORTUMAB VEDOTIN-EJFV
     Dosage: 0.875 MG/KG, UNKNOWN FREQ.
     Route: 041
     Dates: start: 20220222, end: 20220301
  4. ENFORTUMAB VEDOTIN-EJFV [Suspect]
     Active Substance: ENFORTUMAB VEDOTIN-EJFV
     Dosage: 0.625 MG/KG, UNKNOWN FREQ.
     Route: 041
     Dates: start: 20220308, end: 20220426
  5. ENFORTUMAB VEDOTIN-EJFV [Suspect]
     Active Substance: ENFORTUMAB VEDOTIN-EJFV
     Dosage: 1.0 MG/KG, UNKNOWN FREQ.
     Route: 041
     Dates: start: 20220720, end: 20220803
  6. GLYCOSAMINOGLYCANS [Concomitant]
     Active Substance: GLYCOSAMINOGLYCANS
     Indication: Pruritus
     Dosage: UNK UNK, UNKNOWN FREQ.
     Route: 050
  7. BETAMETHASONE DIPROPIONATE [Concomitant]
     Active Substance: BETAMETHASONE DIPROPIONATE
     Indication: Pruritus
     Dosage: UNK UNK, UNKNOWN FREQ.
     Route: 050
  8. BETAMETHASONE DIPROPIONATE [Concomitant]
     Active Substance: BETAMETHASONE DIPROPIONATE
     Indication: Pruritus
     Dosage: OPTIMAL DOSE, TWICE DAILY
     Route: 050
     Dates: start: 20220128, end: 20220830
  9. BETAMETHASONE DIPROPIONATE [Concomitant]
     Active Substance: BETAMETHASONE DIPROPIONATE
     Indication: Erythema
  10. BETAMETHASONE DIPROPIONATE [Concomitant]
     Active Substance: BETAMETHASONE DIPROPIONATE
     Indication: Erythema
  11. MIGLITOL [Concomitant]
     Active Substance: MIGLITOL
     Indication: Product used for unknown indication
     Dosage: UNK UNK, UNKNOWN FREQ.
     Route: 048
  12. PLAVIX [Concomitant]
     Active Substance: CLOPIDOGREL BISULFATE
     Indication: Product used for unknown indication
     Dosage: UNK UNK, UNKNOWN FREQ.
     Route: 048
  13. CEFDITOREN PIVOXIL [Concomitant]
     Active Substance: CEFDITOREN PIVOXIL
     Indication: Product used for unknown indication
     Dosage: UNK UNK, UNKNOWN FREQ.
     Route: 048
  14. METHOTREXATE [Concomitant]
     Active Substance: METHOTREXATE
     Indication: Bladder cancer
     Dosage: 50% DOSE, UNKNOWN FREQ.
     Route: 065
     Dates: start: 20211124, end: 20220104
  15. VINBLASTINE [Concomitant]
     Active Substance: VINBLASTINE
     Indication: Bladder cancer
     Dosage: UNK UNK, UNKNOWN FREQ.
     Route: 065
     Dates: start: 20211124, end: 20220113
  16. DOXORUBICIN HYDROCHLORIDE [Concomitant]
     Active Substance: DOXORUBICIN HYDROCHLORIDE
     Indication: Bladder cancer
     Dosage: UNK UNK, UNKNOWN FREQ.
     Route: 065
     Dates: start: 20211124, end: 20220103
  17. CISPLATIN [Concomitant]
     Active Substance: CISPLATIN
     Indication: Bladder cancer
     Dosage: 50% DOSE, UNKNOWN FREQ.
     Route: 065
     Dates: start: 20211124, end: 20220103
  18. BILASTINE [Concomitant]
     Active Substance: BILASTINE
     Indication: Erythema
     Dosage: UNK UNK, UNKNOWN FREQ.
     Route: 065
  19. BILASTINE [Concomitant]
     Active Substance: BILASTINE
     Indication: Erythema
  20. GLYCOSAMINOGLYCANS [Concomitant]
     Active Substance: GLYCOSAMINOGLYCANS
     Indication: Pruritus
     Dosage: UNK UNK, UNKNOWN FREQ.
     Route: 050
     Dates: start: 20220506, end: 20220830
  21. LYRICA [Concomitant]
     Active Substance: PREGABALIN
     Indication: Neuropathy peripheral
     Dosage: UNK UNK, UNKNOWN FREQ.
     Route: 065
  22. JUVELA [Concomitant]
     Active Substance: .ALPHA.-TOCOPHEROL\RETINOL
     Indication: Neuropathy peripheral
     Dosage: UNK UNK, UNKNOWN FREQ.
     Route: 065
  23. METHYLCOBALAMIN [Concomitant]
     Active Substance: METHYLCOBALAMIN
     Indication: Neuropathy peripheral
     Route: 048
     Dates: start: 20220617, end: 20220830
  24. LYRICA [Concomitant]
     Active Substance: PREGABALIN
     Indication: Neuropathy peripheral
     Route: 048
     Dates: start: 20220617, end: 20220830

REACTIONS (9)
  - Cataract [Not Recovered/Not Resolved]
  - Neuropathy peripheral [Recovered/Resolved with Sequelae]
  - Neuropathy peripheral [Recovering/Resolving]
  - Abdominal discomfort [Recovered/Resolved]
  - Pruritus [Recovered/Resolved]
  - Hyperglycaemia [Unknown]
  - Pruritus [Recovered/Resolved]
  - Erythema [Recovering/Resolving]
  - Erythema [Recovering/Resolving]

NARRATIVE: CASE EVENT DATE: 20220128
